FAERS Safety Report 19631705 (Version 1)
Quarter: 2021Q3

REPORT INFORMATION
  Report Type: Spontaneous
  Country: US (occurrence: US)
  Receive Date: 20210728
  Receipt Date: 20210728
  Transmission Date: 20211014
  Serious: No
  Sender: FDA-Public Use
  Company Number: US-ROCHE-2652173

PATIENT
  Age: 72 Year
  Sex: Female

DRUGS (1)
  1. XELODA [Suspect]
     Active Substance: CAPECITABINE
     Indication: COLON CANCER
     Dosage: (1500 MG IN THE AM, 1000 MG IN THE PM)
     Route: 048
     Dates: start: 20200415

REACTIONS (2)
  - Skin discolouration [Unknown]
  - Alopecia [Unknown]

NARRATIVE: CASE EVENT DATE: 202006
